FAERS Safety Report 9790470 (Version 2)
Quarter: 2014Q2

REPORT INFORMATION
  Report Type: Spontaneous
  Country: US (occurrence: US)
  Receive Date: 20131231
  Receipt Date: 20140616
  Transmission Date: 20141212
  Serious: Yes (Death, Hospitalization, Other)
  Sender: FDA-Public Use
  Company Number: US-009507513-1312USA012382

PATIENT
  Sex: Female
  Weight: 93.42 kg

DRUGS (4)
  1. NUVARING [Suspect]
     Indication: PRODUCT USED FOR UNKNOWN INDICATION
     Dosage: 0.12-0.015 MG/24 HR, INSERT VAGINALLY 3 WEEKS IN AND REMOVE 1 WEEK
     Route: 067
     Dates: start: 20121205
  2. SLOW FE [Concomitant]
     Dosage: 160 MG, TID
     Route: 048
  3. VITAMINS (UNSPECIFIED) [Concomitant]
  4. ANAPROX [Concomitant]
     Dosage: 550 MG, 1 TABLET BID PRN
     Route: 048

REACTIONS (5)
  - Pulmonary embolism [Fatal]
  - Limb injury [Unknown]
  - Pulseless electrical activity [Fatal]
  - Sudden death [Fatal]
  - Influenza like illness [Unknown]
